FAERS Safety Report 10651579 (Version 1)
Quarter: 2014Q4

REPORT INFORMATION
  Report Type: Spontaneous
  Country: US (occurrence: None)
  Receive Date: 20141212
  Receipt Date: 20141212
  Transmission Date: 20150529
  Serious: Yes (Hospitalization)
  Sender: FDA-Public Use
  Company Number: None

PATIENT
  Age: 62 Year
  Sex: Male
  Weight: 110.4 kg

DRUGS (1)
  1. PIOGLITAZONE [Suspect]
     Active Substance: PIOGLITAZONE
     Indication: DIABETES MELLITUS
     Dosage: 1/2 TAB EVERDAY DAY PO
     Route: 048
     Dates: start: 20140625, end: 20140711

REACTIONS (4)
  - Dizziness [None]
  - Seizure like phenomena [None]
  - Mental status changes [None]
  - Oedema [None]

NARRATIVE: CASE EVENT DATE: 20140711
